FAERS Safety Report 12765336 (Version 1)
Quarter: 2016Q3

REPORT INFORMATION
  Report Type: Spontaneous
  Country: US (occurrence: US)
  Receive Date: 20160919
  Receipt Date: 20160919
  Transmission Date: 20161109
  Serious: Yes (Other)
  Sender: FDA-Public Use
  Company Number: None

PATIENT
  Age: 77 Year
  Weight: 89.81 kg

DRUGS (6)
  1. AMLODIPINE [Concomitant]
     Active Substance: AMLODIPINE BESYLATE
  2. ESTRADIOL. [Concomitant]
     Active Substance: ESTRADIOL
  3. TRAMADOL. [Concomitant]
     Active Substance: TRAMADOL
  4. ALEVE [Concomitant]
     Active Substance: NAPROXEN SODIUM
  5. CELECOXIB. [Suspect]
     Active Substance: CELECOXIB
     Indication: OSTEOARTHRITIS
     Dosage: 2 TWICE MOUTH
     Route: 048
     Dates: start: 20160502, end: 20160525
  6. OMEPRAZOLE. [Concomitant]
     Active Substance: OMEPRAZOLE

REACTIONS (3)
  - Chest pain [None]
  - Back pain [None]
  - Gastrooesophageal reflux disease [None]

NARRATIVE: CASE EVENT DATE: 201604
